FAERS Safety Report 20687707 (Version 1)
Quarter: 2022Q2

REPORT INFORMATION
  Report Type: Spontaneous
  Country: US (occurrence: US)
  Receive Date: 20220408
  Receipt Date: 20220408
  Transmission Date: 20220721
  Serious: Yes (Life-Threatening, Hospitalization, Other)
  Sender: FDA-Public Use
  Company Number: US-SUN PHARMACEUTICAL INDUSTRIES LTD-2022R1-330636

PATIENT
  Age: 11 Year
  Sex: Female

DRUGS (1)
  1. AZITHROMYCIN [Suspect]
     Active Substance: AZITHROMYCIN
     Indication: Myocarditis bacterial
     Dosage: 10 MILLIGRAM/KILOGRAM/DOSE OVER 60 MINS
     Route: 042

REACTIONS (2)
  - Hypotension [Unknown]
  - Cardiac arrest [Unknown]
